FAERS Safety Report 6798010-2 (Version None)
Quarter: 2010Q2

REPORT INFORMATION
  Report Type: 
  Country: None (occurrence: None)
  Receive Date: 20100624
  Receipt Date: 20100609
  Transmission Date: 20101027
  Serious: Yes (Hospitalization)
  Sender: FDA-Public Use
  Company Number: 20100109

PATIENT
  Age: 82 Year
  Sex: Male
  Weight: 63.5036 kg

DRUGS (6)
  1. VENOFER [Suspect]
     Indication: IRON DEFICIENCY ANAEMIA
     Dosage: 200 MG X 1 PER DAYS, INTRAVENOUS
     Route: 042
     Dates: start: 20100301, end: 20100301
  2. DIGOXIN [Concomitant]
  3. THEOPHYLLINE [Concomitant]
  4. TIOTROPIUM [Concomitant]
  5. ALBUTEROL [Concomitant]
  6. ALENDRONATE SODIUM [Concomitant]

REACTIONS (1)
  - ACUTE MYOCARDIAL INFARCTION [None]
